FAERS Safety Report 11893342 (Version 3)
Quarter: 2016Q1

REPORT INFORMATION
  Report Type: Spontaneous
  Country: DK (occurrence: JP)
  Receive Date: 20160106
  Receipt Date: 20160330
  Transmission Date: 20160526
  Serious: Yes (Hospitalization)
  Sender: FDA-Public Use
  Company Number: JP-FRI-1000082049

PATIENT
  Age: 60 Year
  Sex: Female
  Weight: 46 kg

DRUGS (4)
  1. LEXAPRO [Suspect]
     Active Substance: ESCITALOPRAM OXALATE
     Indication: DEPRESSION
     Dosage: 10 MG
     Route: 048
     Dates: end: 20151208
  2. MAGNESIUM OXIDE. [Concomitant]
     Active Substance: MAGNESIUM OXIDE
     Indication: PRODUCT USED FOR UNKNOWN INDICATION
     Dosage: 1980 MG
     Route: 048
     Dates: end: 20151208
  3. MEILAX [Concomitant]
     Active Substance: ETHYL LOFLAZEPATE
     Indication: PRODUCT USED FOR UNKNOWN INDICATION
     Dosage: 3 MG
     Route: 048
     Dates: end: 20151208
  4. AMOXAN [Concomitant]
     Active Substance: AMOXAPINE
     Indication: PRODUCT USED FOR UNKNOWN INDICATION
     Dosage: 30 MG
     Route: 048
     Dates: end: 20151208

REACTIONS (5)
  - Electrocardiogram QT prolonged [Recovering/Resolving]
  - Hepatic steatosis [Recovering/Resolving]
  - Altered state of consciousness [Recovering/Resolving]
  - Rhabdomyolysis [Recovering/Resolving]
  - Parkinsonism [Recovering/Resolving]

NARRATIVE: CASE EVENT DATE: 20151208
